FAERS Safety Report 10534228 (Version 1)
Quarter: 2014Q4

REPORT INFORMATION
  Report Type: Spontaneous
  Country: US (occurrence: None)
  Receive Date: 20141021
  Receipt Date: 20141021
  Transmission Date: 20150529
  Serious: No
  Sender: FDA-Public Use
  Company Number: None

PATIENT
  Age: 61 Year
  Sex: Female

DRUGS (7)
  1. AROMASIN [Concomitant]
     Active Substance: EXEMESTANE
  2. LOSARTAN [Concomitant]
     Active Substance: LOSARTAN
  3. GABAPENTIN. [Concomitant]
     Active Substance: GABAPENTIN
  4. HYDROCHOLOROT [Concomitant]
  5. MULTIVITAMIN [Concomitant]
     Active Substance: VITAMINS
  6. AFINITOR [Suspect]
     Active Substance: EVEROLIMUS
     Indication: BREAST CANCER
     Route: 048
     Dates: start: 20140712, end: 201410
  7. DEXAMETHASONE. [Concomitant]
     Active Substance: DEXAMETHASONE

REACTIONS (1)
  - Disease progression [None]
